FAERS Safety Report 8541894-8 (Version None)
Quarter: 2012Q3

REPORT INFORMATION
  Report Type: 
  Country: None (occurrence: None)
  Receive Date: 20120726
  Receipt Date: 20110913
  Transmission Date: 20120928
  Serious: No
  Sender: FDA-Public Use
  Company Number: US-ASTRAZENECA-2011SE55022

PATIENT
  Age: 26 Year
  Sex: Male
  Weight: 79.4 kg

DRUGS (3)
  1. CLONAZEPAM [Concomitant]
  2. SEROQUEL XR [Suspect]
     Route: 048
     Dates: start: 20110901
  3. HYDROCODON [Concomitant]

REACTIONS (5)
  - HYPERHIDROSIS [None]
  - DIARRHOEA [None]
  - DRUG DOSE OMISSION [None]
  - MALAISE [None]
  - PALPITATIONS [None]
